FAERS Safety Report 13014907 (Version 1)
Quarter: 2016Q4

REPORT INFORMATION
  Report Type: Spontaneous
  Country: ES (occurrence: ES)
  Receive Date: 20161209
  Receipt Date: 20161209
  Transmission Date: 20170207
  Serious: Yes (Other)
  Sender: FDA-Public Use
  Company Number: ES-ASTRAZENECA-2016SF28661

PATIENT
  Age: 72 Year
  Sex: Female

DRUGS (17)
  1. DIAMICRON [Concomitant]
     Active Substance: GLICLAZIDE
  2. NEURONTIN [Concomitant]
     Active Substance: GABAPENTIN
  3. OMEPRAZOLE. [Concomitant]
     Active Substance: OMEPRAZOLE
     Route: 048
  4. DILTIAZEM. [Concomitant]
     Active Substance: DILTIAZEM
     Route: 048
  5. PARACETAMOL TARBIS [Concomitant]
  6. VESICARE [Concomitant]
     Active Substance: SOLIFENACIN SUCCINATE
  7. ADIRO [Concomitant]
     Active Substance: ASPIRIN
  8. NOLOTIL [Concomitant]
     Active Substance: METAMIZOLE
  9. PROVISACOR [Concomitant]
     Active Substance: ROSUVASTATIN
  10. FASLODEX [Suspect]
     Active Substance: FULVESTRANT
     Indication: BREAST CANCER METASTATIC
     Dosage: 2X250
     Route: 030
     Dates: start: 201608
  11. BONESIL D FLAS [Concomitant]
  12. ZOMETA [Concomitant]
     Active Substance: ZOLEDRONIC ACID
     Indication: BREAST CANCER METASTATIC
     Dates: start: 201608
  13. LORAZEPAM. [Concomitant]
     Active Substance: LORAZEPAM
     Route: 048
  14. TRAMADOL. [Concomitant]
     Active Substance: TRAMADOL
  15. PRITOR PLUS [Concomitant]
     Active Substance: TELMISARTAN
  16. JANUVIA [Concomitant]
     Active Substance: SITAGLIPTIN PHOSPHATE
  17. SERTRALINE [Concomitant]
     Active Substance: SERTRALINE HYDROCHLORIDE
     Route: 048

REACTIONS (4)
  - Malignant neoplasm progression [Unknown]
  - Intervertebral disc protrusion [Unknown]
  - Metastases to bone [Unknown]
  - Intervertebral disc degeneration [Unknown]
